FAERS Safety Report 4294437-1 (Version None)
Quarter: 2004Q1

REPORT INFORMATION
  Report Type: 
  Country: None (occurrence: None)
  Receive Date: 20040211
  Receipt Date: 20040127
  Transmission Date: 20041129
  Serious: Yes (Other)
  Sender: FDA-Public Use
  Company Number: USA040157531

PATIENT
  Age: 72 Year
  Sex: Female
  Weight: 94 kg

DRUGS (1)
  1. HUMALOG MIX 75/25 [Suspect]
     Indication: DIABETES MELLITUS
     Dosage: 80 U/DAY
     Dates: start: 20020101

REACTIONS (6)
  - ASTHENIA [None]
  - BLOOD GLUCOSE INCREASED [None]
  - FEELING ABNORMAL [None]
  - INSULIN RESISTANCE [None]
  - RENAL FAILURE [None]
  - WEIGHT INCREASED [None]
